FAERS Safety Report 7655202-8 (Version None)
Quarter: 2011Q3

REPORT INFORMATION
  Report Type: 
  Country: None (occurrence: None)
  Receive Date: 20110804
  Receipt Date: 20110725
  Transmission Date: 20111222
  Serious: Yes (Other)
  Sender: FDA-Public Use
  Company Number: US-PERRIGO-11US006204

PATIENT

DRUGS (1)
  1. DIPHENHYDRAMINE HCL [Suspect]
     Indication: PRODUCT USED FOR UNKNOWN INDICATION
     Dosage: UNK, 23 CAPLETS
     Route: 048
     Dates: start: 20110725, end: 20110725

REACTIONS (1)
  - INTENTIONAL OVERDOSE [None]
